FAERS Safety Report 19840865 (Version 2)
Quarter: 2021Q3

REPORT INFORMATION
  Report Type: Report from Study
  Country: GT (occurrence: GT)
  Receive Date: 20210916
  Receipt Date: 20210919
  Transmission Date: 20211014
  Serious: Yes (Other)
  Sender: FDA-Public Use
  Company Number: PHHY2019GT174020

PATIENT
  Age: 29 Year
  Sex: Female

DRUGS (2)
  1. SCAPHO [Suspect]
     Active Substance: SECUKINUMAB
     Indication: ANKYLOSING SPONDYLITIS
     Dosage: 150 MG, QW
     Route: 058
     Dates: start: 20190711
  2. SCAPHO [Interacting]
     Active Substance: SECUKINUMAB
     Dosage: 150 MG, QMO
     Route: 058

REACTIONS (25)
  - Pyrexia [Unknown]
  - Arthralgia [Unknown]
  - Inflammation [Unknown]
  - Nasal congestion [Unknown]
  - Arthritis [Unknown]
  - Back pain [Unknown]
  - Oral discomfort [Unknown]
  - Dysstasia [Unknown]
  - Vomiting [Unknown]
  - Swelling [Unknown]
  - Nasopharyngitis [Unknown]
  - Hypersensitivity [Unknown]
  - Influenza [Unknown]
  - Inguinal hernia [Unknown]
  - Pain in extremity [Unknown]
  - Pain [Unknown]
  - Gastrointestinal pain [Not Recovered/Not Resolved]
  - Ear pain [Unknown]
  - Fall [Unknown]
  - Weight decreased [Unknown]
  - Peripheral swelling [Unknown]
  - Urinary tract infection [Unknown]
  - Neck pain [Unknown]
  - Oropharyngeal pain [Unknown]
  - Ligament sprain [Unknown]

NARRATIVE: CASE EVENT DATE: 20190716
